FAERS Safety Report 6657668-9 (Version None)
Quarter: 2010Q1

REPORT INFORMATION
  Report Type: 
  Country: None (occurrence: None)
  Receive Date: 20100330
  Receipt Date: 20100322
  Transmission Date: 20100710
  Serious: Yes (Other)
  Sender: FDA-Public Use
  Company Number: US-SANOFI-AVENTIS-2010SA017020

PATIENT
  Age: 72 Year
  Sex: Male
  Weight: 63.96 kg

DRUGS (6)
  1. MULTAQ [Suspect]
     Indication: ATRIAL FIBRILLATION
     Route: 048
     Dates: start: 20100322, end: 20100322
  2. METOPROLOL [Concomitant]
  3. CARDIZEM [Concomitant]
  4. LANOXIN [Concomitant]
  5. WARFARIN SODIUM [Concomitant]
  6. LISINOPRIL [Concomitant]

REACTIONS (3)
  - DIZZINESS [None]
  - DYSSTASIA [None]
  - HYPOTENSION [None]
